FAERS Safety Report 9537021 (Version 1)
Quarter: 2013Q3

REPORT INFORMATION
  Report Type: Spontaneous
  Country: GB (occurrence: GB)
  Receive Date: 20130919
  Receipt Date: 20130919
  Transmission Date: 20140515
  Serious: Yes (Other)
  Sender: FDA-Public Use
  Company Number: GB-AMGEN-GBRSP2013065987

PATIENT
  Age: 4 Year
  Sex: Male
  Weight: 21.1 kg

DRUGS (3)
  1. ENBREL [Suspect]
     Indication: JUVENILE IDIOPATHIC ARTHRITIS
     Dosage: 15 MG, UNK
     Route: 058
     Dates: start: 20121031
  2. METHOTREXATE [Concomitant]
     Dosage: UNK UNK, UNK
     Route: 065
  3. FOLIC ACID [Concomitant]
     Dosage: UNK UNK, UNK
     Route: 065

REACTIONS (1)
  - Iridocyclitis [Not Recovered/Not Resolved]
